FAERS Safety Report 8834688 (Version 1)
Quarter: 2012Q4

REPORT INFORMATION
  Report Type: 
  Country: US (occurrence: US)
  Receive Date: 20121010
  Receipt Date: 20121010
  Transmission Date: 20130627
  Serious: Yes (Hospitalization, Other)
  Sender: FDA-Public Use
  Company Number: US-009507513-2009-200154-NL

PATIENT

DRUGS (1)
  1. NUVARING [Suspect]
     Indication: CONTRACEPTION
     Dosage: CONTINUING: NO
     Route: 067
     Dates: start: 200609, end: 20070701

REACTIONS (8)
  - Cholecystitis chronic [Unknown]
  - Pulmonary embolism [Recovered/Resolved]
  - Deep vein thrombosis [Unknown]
  - Thrombophlebitis superficial [Recovered/Resolved]
  - Cholelithiasis [Unknown]
  - Cholecystectomy [Recovered/Resolved]
  - Blood cholesterol increased [Unknown]
  - Pregnancy [Recovered/Resolved]
